FAERS Safety Report 4901826-8 (Version None)
Quarter: 2006Q1

REPORT INFORMATION
  Report Type: 
  Country: None (occurrence: None)
  Receive Date: 20060203
  Receipt Date: 20060203
  Transmission Date: 20060701
  Serious: Yes (Other)
  Sender: FDA-Public Use
  Company Number: None

PATIENT
  Sex: Female
  Weight: 47.1741 kg

DRUGS (3)
  1. ABILIFY [Suspect]
     Indication: ANXIETY
     Dosage: 5 MG DAILY PO
     Route: 048
     Dates: start: 20060112, end: 20060123
  2. ABILIFY [Suspect]
     Indication: THINKING ABNORMAL
     Dosage: 5 MG DAILY PO
     Route: 048
     Dates: start: 20060112, end: 20060123
  3. LEXAPRO [Concomitant]

REACTIONS (2)
  - RASH [None]
  - URTICARIA [None]
